FAERS Safety Report 21724388 (Version 1)
Quarter: 2022Q4

REPORT INFORMATION
  Report Type: Other
  Country: FR (occurrence: None)
  Receive Date: 20221213
  Receipt Date: 20221213
  Transmission Date: 20230112
  Serious: Yes (Death)
  Sender: FDA-Public Use
  Company Number: FR-ROCHE-1105029

PATIENT

DRUGS (6)
  1. BEVACIZUMAB [Suspect]
     Active Substance: BEVACIZUMAB
     Indication: Glioblastoma
     Route: 042
  2. FOTEMUSTINE [Concomitant]
     Active Substance: FOTEMUSTINE
     Indication: Glioblastoma
     Dosage: INDUCTION PHASE
     Route: 042
  3. FOTEMUSTINE [Concomitant]
     Active Substance: FOTEMUSTINE
     Dosage: MAINTENANCE PHASE
     Route: 042
  4. TEMOZOLOMIDE [Concomitant]
     Active Substance: TEMOZOLOMIDE
     Indication: Glioblastoma
     Dosage: FROM THE FIRST DAY OF RADIOTHERAPY, SEVEN DAYS PER WEEK
     Route: 065
  5. TEMOZOLOMIDE [Concomitant]
     Active Substance: TEMOZOLOMIDE
     Dosage: FOR FIVE DAYS EVERY 4 WEEKS
     Route: 065
  6. IRINOTECAN [Concomitant]
     Active Substance: IRINOTECAN
     Indication: Glioblastoma

REACTIONS (1)
  - Subarachnoid haemorrhage [Fatal]
